FAERS Safety Report 19314027 (Version 2)
Quarter: 2021Q3

REPORT INFORMATION
  Report Type: Spontaneous
  Country: US (occurrence: US)
  Receive Date: 20210527
  Receipt Date: 20210705
  Transmission Date: 20211014
  Serious: Yes (Other)
  Sender: FDA-Public Use
  Company Number: US-ROCHE-2836865

PATIENT
  Sex: Female
  Weight: 54.48 kg

DRUGS (3)
  1. RINVOQ [Concomitant]
     Active Substance: UPADACITINIB
     Indication: ARTHRITIS
     Route: 048
     Dates: start: 2019
  2. RITUXAN [Suspect]
     Active Substance: RITUXIMAB
     Indication: VASCULITIS
     Route: 042
  3. ALENDRONATE [Concomitant]
     Active Substance: ALENDRONATE SODIUM
     Indication: OSTEOARTHRITIS
     Route: 048

REACTIONS (2)
  - Noninfective encephalitis [Unknown]
  - Off label use [Unknown]
